FAERS Safety Report 9580879 (Version 6)
Quarter: 2013Q4

REPORT INFORMATION
  Report Type: Spontaneous
  Country: JP (occurrence: JP)
  Receive Date: 20131002
  Receipt Date: 20131205
  Transmission Date: 20140711
  Serious: Yes (Hospitalization)
  Sender: FDA-Public Use
  Company Number: JP-B.I. PHARMACEUTICALS,INC./RIDGEFIELD-2013-BI-30590NB

PATIENT
  Age: 65 Year
  Sex: Female
  Weight: 71.9 kg

DRUGS (15)
  1. TRAZENTA [Suspect]
     Indication: TYPE 2 DIABETES MELLITUS
     Dosage: 5 MG
     Route: 048
     Dates: start: 20130913, end: 20130918
  2. XARELTO / RIVAROXABAN [Suspect]
     Indication: ATRIAL FIBRILLATION
     Dosage: 10 MG
     Route: 048
     Dates: start: 20130906
  3. PLAVIX [Suspect]
     Indication: ANGINA PECTORIS
     Dosage: 75 MG
     Route: 048
     Dates: start: 20130902
  4. DIART [Suspect]
     Indication: CARDIAC FAILURE CONGESTIVE
     Dosage: 60 MG
     Route: 048
     Dates: start: 20130906
  5. SAMSCA [Suspect]
     Indication: CARDIAC FAILURE CONGESTIVE
     Dosage: 15 MG
     Route: 048
     Dates: start: 20130821
  6. MAINTATE [Suspect]
     Indication: ATRIAL FIBRILLATION
     Dosage: 5 MG
     Route: 048
     Dates: start: 20130910
  7. RISPERDAL OD [Suspect]
     Indication: DELIRIUM
     Dosage: 1 MG
     Route: 048
     Dates: start: 20130906
  8. LEXAPRO [Suspect]
     Indication: DEPRESSION
     Dosage: 10 MG
     Route: 048
     Dates: start: 20130906
  9. ACINON / NIZATIDINE [Concomitant]
     Indication: GASTRITIS
     Dosage: 300 MG
     Route: 048
  10. VASOLAN / VERAPAMIL HYDROCHLORIDE [Concomitant]
     Indication: ATRIAL FIBRILLATION
     Dosage: 80 MG
     Route: 048
  11. PREDONINE / PREDNISOLONE [Concomitant]
     Indication: PYREXIA
     Dosage: 10 MG
     Route: 048
     Dates: start: 20130906
  12. NOVORAPID / INSULIN ASPART(GENETICAL RECOMBINATION) [Concomitant]
     Indication: TYPE 2 DIABETES MELLITUS
     Dosage: 24 U
     Route: 058
  13. LANTUS / INSULIN GLARGINE(GENETICAL RECOMBINATION) [Concomitant]
     Indication: TYPE 2 DIABETES MELLITUS
     Dosage: 14 U
     Route: 058
  14. OMNIPAQUE 140 / IOHEXOL [Concomitant]
  15. NEXIUM / ESOMEPRAZOLE MAGNESIUM HYDRATE [Concomitant]

REACTIONS (1)
  - Pancytopenia [Recovered/Resolved]
